FAERS Safety Report 7356515-X (Version None)
Quarter: 2011Q1

REPORT INFORMATION
  Report Type: 
  Country: None (occurrence: None)
  Receive Date: 20110316
  Receipt Date: 20110302
  Transmission Date: 20110831
  Serious: Yes (Hospitalization, Other)
  Sender: FDA-Public Use
  Company Number: PHEH2008US04337

PATIENT
  Sex: Female

DRUGS (54)
  1. ALLEGRA D 24 HOUR [Concomitant]
  2. NEXIUM [Concomitant]
  3. CIPRO [Concomitant]
  4. LOVENOX [Concomitant]
  5. TESTOSTERONE [Concomitant]
     Dosage: UNK,QD
  6. ACTONEL [Suspect]
  7. DEXAMETHASONE [Concomitant]
  8. ZETIA [Concomitant]
  9. TRAZODONE [Concomitant]
  10. MAGNESIUM [Concomitant]
     Dosage: 400, QD
  11. WELLBUTRIN [Concomitant]
  12. ZOCOR [Concomitant]
  13. COMBIVENT                               /GFR/ [Concomitant]
  14. SINGULAIR [Concomitant]
     Dosage: UNK
  15. OXYGEN [Concomitant]
  16. GEMZAR [Concomitant]
  17. CALTRATE [Concomitant]
  18. THYROID TAB [Concomitant]
  19. CEFTIN [Concomitant]
  20. FOLIC ACID [Concomitant]
  21. ALBUTEROL [Concomitant]
  22. CALCIUM [Concomitant]
  23. THYROID TAB [Concomitant]
  24. ZYRTEC [Concomitant]
     Dosage: 10 MG, QD
  25. AREDIA [Suspect]
     Dosage: UNK
  26. ADVAIR DISKUS 100/50 [Concomitant]
  27. CELEXA [Concomitant]
     Dosage: 40MG, DAILY
  28. ARANESP [Concomitant]
     Dosage: 1256 MCG,UNK
     Dates: start: 20080225
  29. ZOMETA [Suspect]
     Dosage: UNK
  30. REGLAN [Concomitant]
  31. FLAGYL [Concomitant]
  32. THYROID [Concomitant]
     Dosage: 0.5 GRAIN, QD
  33. BETAINE HYDROCHLORIDE [Concomitant]
     Dosage: QD,
  34. LECITHIN [Concomitant]
     Dosage: 2 UNK, UNK
  35. BENTYL [Concomitant]
  36. ARANESP [Concomitant]
  37. DUONEB [Concomitant]
     Dosage: UNK
  38. AMINO ACIDS [Concomitant]
     Dosage: UNK, QD
  39. HUMIBID [Concomitant]
  40. SEREVENT [Concomitant]
  41. AEROBID [Concomitant]
  42. PERIDEX [Concomitant]
  43. BUSPAR [Concomitant]
     Dosage: UNK
  44. FLEXERIL [Concomitant]
  45. AUGMENTIN '125' [Concomitant]
  46. CISPLATIN [Concomitant]
  47. CARBOPLATIN [Concomitant]
  48. SODIUM CHLORIDE [Concomitant]
  49. FLEXERIL [Concomitant]
  50. LASIX [Concomitant]
  51. FOSAMAX [Suspect]
  52. NEULASTA [Concomitant]
  53. COUMADIN [Concomitant]
  54. POTASSIUM CHLORIDE [Concomitant]

REACTIONS (100)
  - NON-SMALL CELL LUNG CANCER METASTATIC [None]
  - ARTHROPATHY [None]
  - ANAEMIA [None]
  - OSTEOPOROSIS [None]
  - NEUTROPENIA [None]
  - LARGE INTESTINAL HAEMORRHAGE [None]
  - LUNG NEOPLASM [None]
  - LOBAR PNEUMONIA [None]
  - JOINT SPRAIN [None]
  - NECK PAIN [None]
  - HILAR LYMPHADENOPATHY [None]
  - URINARY TRACT INFECTION [None]
  - SPINAL OSTEOARTHRITIS [None]
  - LACERATION [None]
  - DYSURIA [None]
  - HYPOKALAEMIA [None]
  - INTERSTITIAL LUNG DISEASE [None]
  - CHEST DISCOMFORT [None]
  - OEDEMA MUCOSAL [None]
  - DIVERTICULUM [None]
  - COLONIC POLYP [None]
  - DEPRESSION [None]
  - BLOOD GLUCOSE INCREASED [None]
  - PLEURAL EFFUSION [None]
  - PAIN IN EXTREMITY [None]
  - MUSCULOSKELETAL PAIN [None]
  - ABDOMINAL PAIN [None]
  - PARAESTHESIA [None]
  - FATIGUE [None]
  - CYST [None]
  - FLANK PAIN [None]
  - RECTAL HAEMORRHAGE [None]
  - PULMONARY FIBROSIS [None]
  - HYPERLIPIDAEMIA [None]
  - SLEEP APNOEA SYNDROME [None]
  - VENOUS OCCLUSION [None]
  - LEFT VENTRICULAR DYSFUNCTION [None]
  - OSTEONECROSIS OF JAW [None]
  - PAIN [None]
  - ATELECTASIS [None]
  - SMALL CELL LUNG CANCER STAGE UNSPECIFIED [None]
  - PERNICIOUS ANAEMIA [None]
  - THROMBOCYTOSIS [None]
  - MUSCULAR WEAKNESS [None]
  - PARANASAL SINUS DISCOMFORT [None]
  - BRONCHOPULMONARY ASPERGILLOSIS [None]
  - INTERNATIONAL NORMALISED RATIO INCREASED [None]
  - LOCAL SWELLING [None]
  - VISUAL ACUITY REDUCED [None]
  - ARTERIOSCLEROSIS [None]
  - DISABILITY [None]
  - CEREBRAL ISCHAEMIA [None]
  - HYPONATRAEMIA [None]
  - EXOSTOSIS [None]
  - CERVICAL SPINAL STENOSIS [None]
  - HEPATIC LESION [None]
  - BRONCHITIS [None]
  - OSTEOARTHRITIS [None]
  - OSTEOMYELITIS [None]
  - WHEEZING [None]
  - NEOPLASM MALIGNANT [None]
  - THYROID DISORDER [None]
  - CARDIAC ANEURYSM [None]
  - ASTHENIA [None]
  - GASTRITIS [None]
  - ANHEDONIA [None]
  - DEEP VEIN THROMBOSIS [None]
  - LEUKOCYTOSIS [None]
  - INTERVERTEBRAL DISC DEGENERATION [None]
  - ANAL INFLAMMATION [None]
  - ARTHRALGIA [None]
  - VULVOVAGINAL DRYNESS [None]
  - INTERVERTEBRAL DISC SPACE NARROWING [None]
  - EMPHYSEMA [None]
  - ANXIETY [None]
  - METASTATIC NEOPLASM [None]
  - PYREXIA [None]
  - HYPOAESTHESIA [None]
  - CHEST PAIN [None]
  - CONTUSION [None]
  - LYMPHADENOPATHY MEDIASTINAL [None]
  - FIBULA FRACTURE [None]
  - CHOLELITHIASIS [None]
  - CHOLECYSTITIS [None]
  - HAEMORRHOIDS [None]
  - VITAMIN B12 DEFICIENCY [None]
  - OSTEOPENIA [None]
  - ACUTE STRESS DISORDER [None]
  - ATRIOVENTRICULAR BLOCK FIRST DEGREE [None]
  - DERMAL CYST [None]
  - COUGH [None]
  - PALPITATIONS [None]
  - INJURY [None]
  - KIDNEY INFECTION [None]
  - VENOUS THROMBOSIS [None]
  - INTERVERTEBRAL DISC PROTRUSION [None]
  - CONSTIPATION [None]
  - PULMONARY HYPERTENSION [None]
  - RESPIRATORY DISORDER [None]
  - DYSPNOEA [None]
